FAERS Safety Report 8276596 (Version 2)
Quarter: 2014Q1

REPORT INFORMATION
  Report Type: Spontaneous
  Country: US (occurrence: US)
  Receive Date: 20111206
  Receipt Date: 20140206
  Transmission Date: 20141002
  Serious: No
  Sender: FDA-Public Use
  Company Number: US-JNJFOC-20111111690

PATIENT
  Sex: Female
  Weight: 65.77 kg

DRUGS (6)
  1. FENTANYL [Suspect]
     Indication: MENINGITIS
     Route: 062
     Dates: end: 2011
  2. DURAGESIC [Suspect]
     Indication: MENINGITIS
     Dosage: 100UG/HR+100UG/HR
     Route: 062
     Dates: start: 201108
  3. TOPAMAX [Concomitant]
     Indication: NEUROPATHY PERIPHERAL
     Route: 048
  4. WELLBUTRIN [Concomitant]
     Indication: DEPRESSION
     Route: 048
     Dates: start: 2001, end: 2011
  5. VITAMIN B12 [Concomitant]
     Indication: ANAEMIA
     Route: 058
  6. NASCOBAL [Concomitant]
     Indication: ANAEMIA
     Route: 045

REACTIONS (5)
  - Breakthrough pain [Not Recovered/Not Resolved]
  - Product quality issue [Unknown]
  - Wrong technique in drug usage process [Not Recovered/Not Resolved]
  - Product quality issue [Not Recovered/Not Resolved]
  - Inadequate analgesia [Not Recovered/Not Resolved]
